FAERS Safety Report 24329108 (Version 3)
Quarter: 2024Q4

REPORT INFORMATION
  Report Type: Other
  Country: US (occurrence: US)
  Receive Date: 20240917
  Receipt Date: 20241217
  Transmission Date: 20250114
  Serious: No
  Sender: TRAVERE THERAPEUTICS
  Company Number: US-TRAVERE-2024TVT00859

PATIENT
  Age: 41 Year
  Sex: Female

DRUGS (1)
  1. FILSPARI [Suspect]
     Active Substance: SPARSENTAN
     Indication: IgA nephropathy
     Route: 048
     Dates: start: 20240823, end: 202411

REACTIONS (9)
  - Abdominal pain [Unknown]
  - Fatigue [None]
  - Hypotension [Unknown]
  - Decreased appetite [Unknown]
  - Photopsia [Unknown]
  - Anxiety [Unknown]
  - Depression [Unknown]
  - Contusion [Unknown]
  - Gait inability [Unknown]

NARRATIVE: CASE EVENT DATE: 20241101
